FAERS Safety Report 21926245 (Version 1)
Quarter: 2023Q1

REPORT INFORMATION
  Report Type: Report from Study
  Country: JP (occurrence: JP)
  Receive Date: 20230130
  Receipt Date: 20230130
  Transmission Date: 20230417
  Serious: Yes (Other)
  Sender: FDA-Public Use
  Company Number: JP-GRUNENTHAL-2023-100471

PATIENT

DRUGS (1)
  1. TRAMADOL HYDROCHLORIDE [Suspect]
     Active Substance: TRAMADOL HYDROCHLORIDE
     Indication: Product used for unknown indication
     Dosage: UNK
     Route: 065

REACTIONS (8)
  - Neuroleptic malignant syndrome [Unknown]
  - Parkinsonism [Unknown]
  - Parkinson^s disease [Unknown]
  - Dystonia [Unknown]
  - Torticollis [Unknown]
  - Blepharospasm [Unknown]
  - Tremor [Unknown]
  - Extrapyramidal disorder [Unknown]
